FAERS Safety Report 17633207 (Version 2)
Quarter: 2020Q2

REPORT INFORMATION
  Report Type: Spontaneous
  Country: US (occurrence: US)
  Receive Date: 20200406
  Receipt Date: 20200421
  Transmission Date: 20200713
  Serious: No
  Sender: FDA-Public Use
  Company Number: US-ASTRAZENECA-2020SE38237

PATIENT
  Sex: Male

DRUGS (1)
  1. SYMBICORT [Suspect]
     Active Substance: BUDESONIDE\FORMOTEROL FUMARATE DIHYDRATE
     Dosage: 80-4.5 MCG UNKNOWN UNKNOWN
     Route: 055
     Dates: start: 20200304

REACTIONS (5)
  - Depressed mood [Unknown]
  - Intentional device misuse [Unknown]
  - Therapeutic product effect decreased [Unknown]
  - Device issue [Unknown]
  - Drug dose omission by device [Unknown]
